FAERS Safety Report 4499189-8 (Version None)
Quarter: 2004Q4

REPORT INFORMATION
  Report Type: 
  Country: None (occurrence: None)
  Receive Date: 20041111
  Receipt Date: 20041103
  Transmission Date: 20050328
  Serious: Yes (Disabling)
  Sender: FDA-Public Use
  Company Number: PHBS2004DK14935

PATIENT
  Age: 53 Year
  Sex: Female
  Weight: 62 kg

DRUGS (1)
  1. LAMISIL [Suspect]
     Indication: NAIL TINEA
     Dosage: 250 MG/DAY
     Route: 048
     Dates: start: 20040720, end: 20040831

REACTIONS (16)
  - ABDOMINAL PAIN [None]
  - AGEUSIA [None]
  - ANOREXIA [None]
  - CONSTIPATION [None]
  - DIARRHOEA [None]
  - DISTURBANCE IN ATTENTION [None]
  - DRY THROAT [None]
  - EARLY SATIETY [None]
  - FATIGUE [None]
  - HYPERSOMNIA [None]
  - LIVER FUNCTION TEST ABNORMAL [None]
  - MEMORY IMPAIRMENT [None]
  - NAUSEA [None]
  - THIRST DECREASED [None]
  - VULVOVAGINAL DRYNESS [None]
  - WEIGHT DECREASED [None]
